FAERS Safety Report 8610267-1 (Version None)
Quarter: 2012Q3

REPORT INFORMATION
  Report Type: 
  Country: None (occurrence: None)
  Receive Date: 20120810
  Receipt Date: 20120810
  Transmission Date: 20120928
  Serious: Yes (Other)
  Sender: FDA-Public Use
  Company Number: None

PATIENT
  Sex: Female
  Weight: 60.3284 kg

DRUGS (2)
  1. REBIF [Suspect]
     Indication: MULTIPLE SCLEROSIS
     Dosage: 44;22MCG, 3XWEEK, SQ
     Dates: start: 20100111, end: 20100501
  2. REBIF [Suspect]
     Indication: MULTIPLE SCLEROSIS
     Dosage: 44;22MCG, 3XWEEK, SQ
     Dates: start: 20100630, end: 20101127

REACTIONS (1)
  - BREAST CANCER FEMALE [None]
